FAERS Safety Report 15707151 (Version 1)
Quarter: 2018Q4

REPORT INFORMATION
  Report Type: Report from Study
  Country: None (occurrence: BE)
  Receive Date: 20181210
  Receipt Date: 20181210
  Transmission Date: 20190205
  Serious: Yes (Other)
  Sender: FDA-Public Use
  Company Number: BE-ABBVIE-18K-013-2579157-00

PATIENT
  Sex: Female

DRUGS (1)
  1. HUMIRA [Suspect]
     Active Substance: ADALIMUMAB
     Indication: PRODUCT USED FOR UNKNOWN INDICATION
     Route: 058
     Dates: end: 201809

REACTIONS (10)
  - Nervousness [Unknown]
  - Adenoma benign [Unknown]
  - Laziness [Unknown]
  - Confusional state [Unknown]
  - Suicidal ideation [Unknown]
  - Fatigue [Unknown]
  - Depressed mood [Unknown]
  - Feeling abnormal [Unknown]
  - Wrong technique in product usage process [Unknown]
  - Fall [Recovered/Resolved]
